FAERS Safety Report 10926313 (Version 1)
Quarter: 2015Q1

REPORT INFORMATION
  Report Type: Spontaneous
  Country: JP (occurrence: JP)
  Receive Date: 20150318
  Receipt Date: 20150318
  Transmission Date: 20150721
  Serious: Yes (Hospitalization)
  Sender: FDA-Public Use
  Company Number: JP-ELI_LILLY_AND_COMPANY-JP201503004545

PATIENT
  Sex: Female

DRUGS (2)
  1. MIRTAZAPINE. [Suspect]
     Active Substance: MIRTAZAPINE
     Indication: DEPRESSION
     Dosage: UNK
     Route: 048
     Dates: start: 201502, end: 201502
  2. CYMBALTA [Suspect]
     Active Substance: DULOXETINE HYDROCHLORIDE
     Indication: DEPRESSION
     Dosage: UNK
     Route: 048
     Dates: start: 201502

REACTIONS (1)
  - Parkinsonism [Recovering/Resolving]

NARRATIVE: CASE EVENT DATE: 201502
